FAERS Safety Report 5765773-4 (Version None)
Quarter: 2008Q2

REPORT INFORMATION
  Report Type: 
  Country: None (occurrence: None)
  Receive Date: 20080606
  Receipt Date: 20080228
  Transmission Date: 20081010
  Serious: Yes (Death, Life-Threatening, Other)
  Sender: FDA-Public Use
  Company Number: CLOF-10785

PATIENT
  Age: 70 Year
  Sex: Female

DRUGS (17)
  1. CLOFARABINE AND/OR ARA-C (CODE NOT BROKEN) SOLUTION FOR INFUSION [Suspect]
     Indication: MYELOID LEUKAEMIA
     Dosage: BLINDED, INFORMATION WITHHELD.
     Dates: start: 20071113, end: 20071117
  2. CYTARABINE [Suspect]
     Indication: MYELOID LEUKAEMIA
     Dosage: 1600 MG/M2 X5DAY, INTRAVENOUS
     Route: 042
     Dates: start: 20071113, end: 20071117
  3. NEXIUM [Concomitant]
  4. ACYCLOVIR [Concomitant]
  5. METOPROLOL TARTRATE [Concomitant]
  6. SYNTHROID [Concomitant]
  7. AMBIEN [Concomitant]
  8. ATIVAN [Concomitant]
  9. PERCOCET [Concomitant]
  10. DEXAMETHASONE TAB [Concomitant]
  11. CASPOFUNGIN (CASPOFUNGIN) [Concomitant]
  12. PEPCID [Concomitant]
  13. ZANTAC [Concomitant]
  14. REGLAN [Concomitant]
  15. SEPTRA DS [Concomitant]
  16. LEVAQUIN [Concomitant]
  17. ALLOPURINOL [Concomitant]

REACTIONS (9)
  - ACUTE RESPIRATORY FAILURE [None]
  - CEREBROVASCULAR ACCIDENT [None]
  - FEBRILE NEUTROPENIA [None]
  - HAEMODIALYSIS [None]
  - HAEMOGLOBIN DECREASED [None]
  - HYPOTENSION [None]
  - PULMONARY ALVEOLAR HAEMORRHAGE [None]
  - RENAL FAILURE ACUTE [None]
  - SEPTIC SHOCK [None]
